FAERS Safety Report 7307457-7 (Version None)
Quarter: 2011Q1

REPORT INFORMATION
  Report Type: 
  Country: None (occurrence: None)
  Receive Date: 20110223
  Receipt Date: 20110215
  Transmission Date: 20110831
  Serious: Yes (Other)
  Sender: FDA-Public Use
  Company Number: JP-PFIZER INC-2011029560

PATIENT
  Age: 64 Year
  Sex: Male

DRUGS (1)
  1. ZYVOX [Suspect]
     Dosage: UNK
     Route: 041

REACTIONS (2)
  - RENAL IMPAIRMENT [None]
  - PLATELET COUNT DECREASED [None]
